FAERS Safety Report 20000159 (Version 1)
Quarter: 2021Q4

REPORT INFORMATION
  Report Type: Spontaneous
  Country: US (occurrence: US)
  Receive Date: 20211027
  Receipt Date: 20211027
  Transmission Date: 20220303
  Serious: Yes (Hospitalization)
  Sender: FDA-Public Use
  Company Number: US-JNJFOC-20211027274

PATIENT
  Age: 24 Year
  Sex: Male
  Weight: 69 kg

DRUGS (1)
  1. TYLENOL [Suspect]
     Active Substance: ACETAMINOPHEN
     Indication: Product used for unknown indication
     Dosage: UNKNOWN DOSE
     Route: 048

REACTIONS (4)
  - Acute hepatic failure [Recovered/Resolved]
  - Suicide attempt [Recovered/Resolved]
  - Drug-induced liver injury [Recovered/Resolved]
  - Intentional overdose [Recovered/Resolved]
